FAERS Safety Report 20335290 (Version 1)
Quarter: 2022Q1

REPORT INFORMATION
  Report Type: Spontaneous
  Country: US (occurrence: None)
  Receive Date: 20220113
  Receipt Date: 20220113
  Transmission Date: 20220423
  Serious: Yes (Hospitalization, Other)
  Sender: FDA-Public Use
  Company Number: None

PATIENT
  Age: 36 Year
  Sex: Female
  Weight: 85.5 kg

DRUGS (5)
  1. REMDESIVIR [Suspect]
     Active Substance: REMDESIVIR
     Indication: COVID-19 pneumonia
     Dosage: FREQUENCY : DAILY;?
     Route: 042
     Dates: start: 20220102, end: 20220106
  2. ZINC [Concomitant]
     Active Substance: ZINC
  3. VITAMIN C [Concomitant]
     Active Substance: ASCORBIC ACID
  4. VITAMIN D [Concomitant]
     Active Substance: VITAMIN D NOS
  5. VITAMINS [Concomitant]
     Active Substance: VITAMINS

REACTIONS (14)
  - Migraine [None]
  - Vertigo [None]
  - Tinnitus [None]
  - Head discomfort [None]
  - Headache [None]
  - Feeling abnormal [None]
  - Sensory disturbance [None]
  - Acne [None]
  - Skin lesion [None]
  - Arthralgia [None]
  - Feeling abnormal [None]
  - Disturbance in attention [None]
  - Amnesia [None]
  - Vision blurred [None]

NARRATIVE: CASE EVENT DATE: 20220112
